FAERS Safety Report 6667251-7 (Version None)
Quarter: 2010Q2

REPORT INFORMATION
  Report Type: 
  Country: None (occurrence: None)
  Receive Date: 20100401
  Receipt Date: 20100401
  Transmission Date: 20101027
  Serious: Yes (Other)
  Sender: FDA-Public Use
  Company Number: None

PATIENT
  Age: 11 Month
  Sex: Female
  Weight: 9.0719 kg

DRUGS (1)
  1. AMOXICILLIN [Suspect]
     Indication: EAR INFECTION
     Dosage: 1 TEASPOON TID PO
     Route: 048
     Dates: start: 20100321, end: 20100324

REACTIONS (2)
  - ERYTHEMA MULTIFORME [None]
  - RASH [None]
